FAERS Safety Report 5714713-2 (Version None)
Quarter: 2008Q2

REPORT INFORMATION
  Report Type: 
  Country: None (occurrence: None)
  Receive Date: 20080422
  Receipt Date: 20080415
  Transmission Date: 20081010
  Serious: No
  Sender: FDA-Public Use
  Company Number: 08H-163-0314174-00

PATIENT
  Age: 56 Year
  Sex: Male

DRUGS (6)
  1. PANHEPRIN [Suspect]
     Indication: INTRAVENOUS CATHETER MANAGEMENT
     Dosage: ONCE A DAY, INTRAVENOUS
     Route: 042
     Dates: start: 20070330, end: 20080411
  2. PERCOCET [Concomitant]
  3. ALBUTEROL [Concomitant]
  4. FLAGYL [Concomitant]
  5. WELLBUTRIN [Concomitant]
  6. SINGULAIR [Concomitant]

REACTIONS (8)
  - ABDOMINAL PAIN UPPER [None]
  - DIARRHOEA [None]
  - DYSPHAGIA [None]
  - DYSPNOEA [None]
  - HEADACHE [None]
  - HYPERHIDROSIS [None]
  - TACHYCARDIA [None]
  - VOMITING [None]
